FAERS Safety Report 4570629-9 (Version None)
Quarter: 2005Q1

REPORT INFORMATION
  Report Type: 
  Country: None (occurrence: None)
  Receive Date: 20050202
  Receipt Date: 20050202
  Transmission Date: 20050727
  Serious: Yes (Other)
  Sender: FDA-Public Use
  Company Number: None

PATIENT
  Age: 48 Year
  Sex: Female
  Weight: 93.441 kg

DRUGS (1)
  1. GABAPENTIN [Suspect]
     Indication: PAIN
     Dosage: TWO, 8 HOUR   600   ORAL
     Route: 048
     Dates: start: 20041203, end: 20050201

REACTIONS (1)
  - PAIN [None]
